FAERS Safety Report 19951266 (Version 5)
Quarter: 2022Q1

REPORT INFORMATION
  Report Type: Report from Study
  Country: US (occurrence: US)
  Receive Date: 20211014
  Receipt Date: 20220206
  Transmission Date: 20220424
  Serious: No
  Sender: FDA-Public Use
  Company Number: NVSC2021US234698

PATIENT
  Age: 38 Year
  Sex: Male

DRUGS (2)
  1. COSENTYX [Suspect]
     Active Substance: SECUKINUMAB
     Indication: Psoriasis
     Dosage: 300 MG, QW (FIVE WEEKS)
     Route: 058
     Dates: start: 20210811
  2. COSENTYX [Suspect]
     Active Substance: SECUKINUMAB
     Dosage: 300 MG, QMO
     Route: 058
     Dates: start: 20210811

REACTIONS (3)
  - Arthralgia [Unknown]
  - Psoriasis [Unknown]
  - Pigmentation disorder [Unknown]

NARRATIVE: CASE EVENT DATE: 20210917
